FAERS Safety Report 14186316 (Version 4)
Quarter: 2019Q3

REPORT INFORMATION
  Report Type: Report from Study
  Country: CA (occurrence: CA)
  Receive Date: 20171114
  Receipt Date: 20190918
  Transmission Date: 20191004
  Serious: Yes (Hospitalization, Other)
  Sender: FDA-Public Use
  Company Number: CA-ROCHE-2020855

PATIENT
  Age: 81 Year
  Sex: Female
  Weight: 66.7 kg

DRUGS (36)
  1. PREGABALIN. [Concomitant]
     Active Substance: PREGABALIN
     Route: 065
     Dates: start: 20180726
  2. VIT D [Concomitant]
     Active Substance: VITAMIN D NOS
  3. ACTEMRA [Suspect]
     Active Substance: TOCILIZUMAB
     Route: 042
  4. PREVNAR [Concomitant]
     Active Substance: PNEUMOCOCCAL 7-VALENT CONJUGATE VACCINE (DIPHTHERIA CRM197 PROTEIN)
     Dosage: 0.5 ML
     Route: 065
     Dates: start: 20181030
  5. OXEZE [Concomitant]
     Active Substance: FORMOTEROL FUMARATE
     Route: 065
     Dates: start: 20180926
  6. SYMBICORT [Concomitant]
     Active Substance: BUDESONIDE\FORMOTEROL FUMARATE DIHYDRATE
  7. PNEUMOVAX 23 [Concomitant]
     Active Substance: PNEUMOCOCCAL VACCINE, POLYVALENT 23
     Dosage: 0.5 ML
     Route: 065
     Dates: start: 20181030
  8. SULFATRIM [Concomitant]
     Active Substance: SULFAMETHOXAZOLE\TRIMETHOPRIM
     Dosage: 160-800 MG
     Route: 065
     Dates: start: 20181026
  9. NITRO [GLYCERYL TRINITRATE] [Concomitant]
     Active Substance: NITROGLYCERIN
     Route: 065
  10. LYRICA [Concomitant]
     Active Substance: PREGABALIN
  11. VENTOLIN [Concomitant]
     Active Substance: ALBUTEROL SULFATE
  12. PRIMROSE [Concomitant]
  13. MYCOPHENOLATE MOFETIL SANDOZ [Concomitant]
     Active Substance: MYCOPHENOLATE MOFETIL
     Route: 065
     Dates: start: 20180926
  14. SULFATRIM [Concomitant]
     Active Substance: SULFAMETHOXAZOLE\TRIMETHOPRIM
     Route: 065
     Dates: start: 20180926
  15. PREGABALIN. [Concomitant]
     Active Substance: PREGABALIN
     Route: 065
     Dates: start: 20180928
  16. QUININE [Concomitant]
     Active Substance: QUININE
     Route: 065
     Dates: start: 20181026
  17. CARBOCAL D [Concomitant]
     Active Substance: CALCIUM\VITAMIN D
     Route: 065
     Dates: start: 20181026
  18. CALCIUM [Concomitant]
     Active Substance: CALCIUM
  19. ACTEMRA [Suspect]
     Active Substance: TOCILIZUMAB
     Indication: RHEUMATOID ARTHRITIS
     Route: 042
     Dates: start: 20110602
  20. LINCTUS CODEINE [Concomitant]
     Dosage: 10MG/5ML
     Route: 065
     Dates: start: 20181108
  21. NYSTATIN. [Concomitant]
     Active Substance: NYSTATIN
     Route: 065
     Dates: start: 20180717
  22. CELECOXIB. [Concomitant]
     Active Substance: CELECOXIB
     Route: 065
     Dates: start: 20181026
  23. ROSUVASTATIN. [Concomitant]
     Active Substance: ROSUVASTATIN
  24. PLAQUENIL [Concomitant]
     Active Substance: HYDROXYCHLOROQUINE SULFATE
  25. PARIET [Concomitant]
     Active Substance: RABEPRAZOLE SODIUM
  26. XARELTO [Concomitant]
     Active Substance: RIVAROXABAN
     Route: 065
     Dates: start: 20181101
  27. PREGABALIN. [Concomitant]
     Active Substance: PREGABALIN
     Route: 065
     Dates: start: 20181026
  28. SPIRIVA [Concomitant]
     Active Substance: TIOTROPIUM BROMIDE MONOHYDRATE
     Route: 065
     Dates: start: 20181026
  29. PREDNISONE. [Concomitant]
     Active Substance: PREDNISONE
     Route: 048
     Dates: start: 20181026
  30. SALAGEN [Concomitant]
     Active Substance: PILOCARPINE HYDROCHLORIDE
     Route: 065
  31. CELEBREX [Concomitant]
     Active Substance: CELECOXIB
  32. MYCOPHENOLATE MOFETIL SANDOZ [Concomitant]
     Active Substance: MYCOPHENOLATE MOFETIL
     Route: 065
     Dates: start: 20180726
  33. DEXILANT [Concomitant]
     Active Substance: DEXLANSOPRAZOLE
     Route: 065
  34. VITAMIN C [Concomitant]
     Active Substance: ASCORBIC ACID
  35. MYCOPHENOLATE MOFETIL SANDOZ [Concomitant]
     Active Substance: MYCOPHENOLATE MOFETIL
     Route: 065
     Dates: start: 20181026
  36. DEXILANT [Concomitant]
     Active Substance: DEXLANSOPRAZOLE
     Route: 065
     Dates: start: 20181026

REACTIONS (6)
  - Fall [Unknown]
  - Tendon rupture [Not Recovered/Not Resolved]
  - Pneumonia [Unknown]
  - Bronchitis [Unknown]
  - Pulmonary fibrosis [Not Recovered/Not Resolved]
  - Pulmonary embolism [Unknown]

NARRATIVE: CASE EVENT DATE: 20171018
